FAERS Safety Report 20662433 (Version 1)
Quarter: 2022Q2

REPORT INFORMATION
  Report Type: Spontaneous
  Country: US (occurrence: US)
  Receive Date: 20220401
  Receipt Date: 20220401
  Transmission Date: 20220721
  Serious: Yes (Other)
  Sender: FDA-Public Use
  Company Number: US-NOVARTISPH-NVSC2022US069956

PATIENT
  Age: 66 Year
  Sex: Female

DRUGS (3)
  1. LINEZOLID [Suspect]
     Active Substance: LINEZOLID
     Indication: Mycobacterium abscessus infection
     Dosage: UNK
     Route: 065
  2. AZITHROMYCIN [Concomitant]
     Active Substance: AZITHROMYCIN
     Indication: Mycobacterium abscessus infection
     Dosage: UNK
     Route: 065
     Dates: end: 202006
  3. MINOCYCLINE [Concomitant]
     Active Substance: MINOCYCLINE HYDROCHLORIDE
     Indication: Mycobacterium abscessus infection
     Dosage: UNK
     Route: 065
     Dates: end: 202006

REACTIONS (3)
  - Pancytopenia [Unknown]
  - Product prescribing issue [Unknown]
  - Product use in unapproved indication [Unknown]
